FAERS Safety Report 17056365 (Version 1)
Quarter: 2019Q4

REPORT INFORMATION
  Report Type: Report from Study
  Country: NL (occurrence: NL)
  Receive Date: 20191121
  Receipt Date: 20191121
  Transmission Date: 20200122
  Serious: Yes (Other)
  Sender: FDA-Public Use
  Company Number: NL-TEVA-2019-NL-1137549

PATIENT
  Age: 31 Year
  Sex: Female

DRUGS (5)
  1. GABAPENTIN. [Concomitant]
     Active Substance: GABAPENTIN
     Dosage: 440 MG+200 MG
  2. PANTOPRAZOL [Concomitant]
     Active Substance: PANTOPRAZOLE SODIUM
     Dosage: (WHEN NEEDED)
  3. CELECOXIB. [Concomitant]
     Active Substance: CELECOXIB
  4. COPAXONE [Suspect]
     Active Substance: GLATIRAMER ACETATE
     Indication: MULTIPLE SCLEROSIS
     Route: 058
     Dates: start: 20190605, end: 20191111
  5. TRIPTILINE [Concomitant]
     Dosage: 10 MG (FOR AT NIGHT)

REACTIONS (5)
  - Multiple sclerosis relapse [Recovering/Resolving]
  - Coordination abnormal [Recovering/Resolving]
  - Gait disturbance [Recovering/Resolving]
  - Multiple sclerosis [Not Recovered/Not Resolved]
  - Neuropathy peripheral [Recovering/Resolving]

NARRATIVE: CASE EVENT DATE: 201910
